FAERS Safety Report 11642607 (Version 1)
Quarter: 2015Q4

REPORT INFORMATION
  Report Type: Spontaneous
  Country: BE (occurrence: BE)
  Receive Date: 20151020
  Receipt Date: 20151020
  Transmission Date: 20160304
  Serious: Yes (Death, Other)
  Sender: FDA-Public Use
  Company Number: BE-SUN PHARMACEUTICAL INDUSTRIES LTD-2015R1-099852

PATIENT
  Age: 67 Year
  Sex: Female

DRUGS (2)
  1. DICLOFENAC [Suspect]
     Active Substance: DICLOFENAC
     Indication: ARTHRALGIA
     Dosage: 50 MG, TID
     Route: 065
     Dates: start: 201201
  2. ASPIRIN. [Suspect]
     Active Substance: ASPIRIN
     Indication: INTERMITTENT CLAUDICATION
     Dosage: LOW DOSE
     Route: 065
     Dates: start: 2005

REACTIONS (3)
  - Contraindicated drug administered [Unknown]
  - Complications of intestinal transplant [Fatal]
  - Arthralgia [Unknown]

NARRATIVE: CASE EVENT DATE: 2012
